FAERS Safety Report 10008580 (Version 2)
Quarter: 2014Q1

REPORT INFORMATION
  Report Type: Spontaneous
  Country: US (occurrence: US)
  Receive Date: 20140312
  Receipt Date: 20140312
  Transmission Date: 20141002
  Serious: No
  Sender: FDA-Public Use
  Company Number: US-INCYTE CORPORATION-2012IN000048

PATIENT
  Sex: Female

DRUGS (4)
  1. JAKAFI [Suspect]
     Indication: MYELOFIBROSIS
     Dosage: 10 MG, BID
     Route: 048
     Dates: start: 201201
  2. LEVOTHYROXINE [Concomitant]
     Indication: HYPOTHYROIDISM
     Dosage: 75 MCG, QD
     Dates: start: 2003
  3. ZOLPIDEM [Concomitant]
     Dosage: 5 MG, UNK
     Dates: start: 201105
  4. FEROCON [Concomitant]
     Indication: MINERAL SUPPLEMENTATION
     Dosage: 1, QD (PRESCRIPTION MEDICATION)

REACTIONS (2)
  - Bone pain [Not Recovered/Not Resolved]
  - Insomnia [Unknown]
